FAERS Safety Report 14889925 (Version 3)
Quarter: 2018Q2

REPORT INFORMATION
  Report Type: Spontaneous
  Country: FR (occurrence: FR)
  Receive Date: 20180514
  Receipt Date: 20180627
  Transmission Date: 20180711
  Serious: Yes (Hospitalization)
  Sender: FDA-Public Use
  Company Number: FR-TEVA-2018-FR-892584

PATIENT
  Age: 30 Year
  Sex: Female
  Weight: 110 kg

DRUGS (24)
  1. PARACETAMOL [Suspect]
     Active Substance: ACETAMINOPHEN
     Indication: ANALGESIC INTERVENTION SUPPORTIVE THERAPY
     Route: 065
     Dates: start: 20141127
  2. LIBRADOL [Suspect]
     Active Substance: ACETAMINOPHEN
     Indication: PROCEDURAL PAIN
     Dosage: 1 DF, QID
     Route: 042
     Dates: start: 20171031, end: 20171101
  3. DAFALGAN CODEINE [Suspect]
     Active Substance: ACETAMINOPHEN\CODEINE PHOSPHATE
     Indication: ANTIBIOTIC PROPHYLAXIS
     Route: 042
     Dates: start: 20171101, end: 20171101
  4. GENTAMICINE [Suspect]
     Active Substance: GENTAMICIN
     Indication: ANTIBIOTIC PROPHYLAXIS
     Dosage: 3.2 G, UNK
     Route: 042
     Dates: start: 20171101, end: 20171101
  5. PROPOFOL. [Suspect]
     Active Substance: PROPOFOL
     Indication: PAIN
     Route: 042
     Dates: start: 20141127
  6. LEXOMIL [Suspect]
     Active Substance: BROMAZEPAM
     Indication: ANXIETY
     Dosage: 3 MG, UNK
     Route: 048
     Dates: start: 20171101, end: 20171101
  7. MORPHINE HYDROCHLORIDE [Suspect]
     Active Substance: MORPHINE HYDROCHLORIDE
     Indication: PROCEDURAL PAIN
     Dosage: 3 MG, 10 MINUTES
     Route: 042
     Dates: start: 20171031, end: 20171101
  8. LEVOCETIRIZINE [Suspect]
     Active Substance: LEVOCETIRIZINE
     Indication: RASH PRURITIC
     Dosage: 5 MG, UNK
     Route: 048
     Dates: start: 20171101, end: 20171101
  9. DAFALGAN CODEINE [Suspect]
     Active Substance: ACETAMINOPHEN\CODEINE PHOSPHATE
     Indication: RASH PRURITIC
     Dosage: 5 MG, UNK
     Route: 048
     Dates: start: 20171101, end: 20171101
  10. DROPERIDOL. [Suspect]
     Active Substance: DROPERIDOL
     Indication: AGITATION
     Dosage: 1.25 MG, UNK
     Route: 042
     Dates: start: 20171031, end: 20171102
  11. DALACINE [Suspect]
     Active Substance: CLINDAMYCIN HYDROCHLORIDE
     Indication: PROPHYLAXIS
     Route: 042
     Dates: start: 20141127, end: 20141129
  12. DALACINE [Suspect]
     Active Substance: CLINDAMYCIN HYDROCHLORIDE
     Route: 042
     Dates: start: 20141227, end: 20141229
  13. DAFALGAN CODEINE [Suspect]
     Active Substance: ACETAMINOPHEN\CODEINE PHOSPHATE
     Indication: AGITATION
     Dosage: 1.25 MG, UNK
     Route: 042
     Dates: start: 20171031, end: 20171102
  14. SUFENTANIL [Suspect]
     Active Substance: SUFENTANIL
     Indication: PRODUCT USED FOR UNKNOWN INDICATION
     Route: 042
     Dates: start: 20141127
  15. PROPOFOL. [Suspect]
     Active Substance: PROPOFOL
     Dosage: DOSAGE FORM: UNSPECIFIED
     Route: 042
     Dates: start: 20141124
  16. TRAMADOL. [Suspect]
     Active Substance: TRAMADOL
     Route: 065
     Dates: start: 20141124
  17. DAFALGAN CODEINE [Suspect]
     Active Substance: ACETAMINOPHEN\CODEINE PHOSPHATE
     Indication: NEUROMUSCULAR BLOCKADE REVERSAL
     Route: 042
  18. DAFALGAN CODEINE [Suspect]
     Active Substance: ACETAMINOPHEN\CODEINE PHOSPHATE
     Indication: PROCEDURAL PAIN
     Dosage: 3 MG, UNK
     Route: 042
     Dates: start: 20171031, end: 20171101
  19. POLARAMINE [Suspect]
     Active Substance: DEXCHLORPHENIRAMINE MALEATE
     Indication: RASH PRURITIC
     Route: 042
     Dates: start: 20171102, end: 20171102
  20. PARACETAMOL [Suspect]
     Active Substance: ACETAMINOPHEN
     Indication: PROCEDURAL PAIN
     Dosage: DOSAGE FORM: UNSPECIFIED
     Route: 065
     Dates: start: 20141227
  21. PARACETAMOL [Suspect]
     Active Substance: ACETAMINOPHEN
     Route: 042
     Dates: start: 20171031, end: 20171101
  22. TRAMADOL. [Suspect]
     Active Substance: TRAMADOL
     Indication: ANALGESIC INTERVENTION SUPPORTIVE THERAPY
     Route: 065
     Dates: start: 20141127
  23. METRONIDAZOLE. [Suspect]
     Active Substance: METRONIDAZOLE
     Indication: ANTIBIOTIC PROPHYLAXIS
     Dosage: 500 MG, UNK
     Route: 042
     Dates: start: 20171101, end: 20171101
  24. LOVENOX [Suspect]
     Active Substance: ENOXAPARIN SODIUM
     Indication: THROMBOSIS PROPHYLAXIS
     Dosage: 8000 IU, QD
     Route: 042
     Dates: start: 20171031, end: 20171101

REACTIONS (3)
  - Rash generalised [Recovered/Resolved]
  - Eosinophilia [Recovered/Resolved]
  - Drug reaction with eosinophilia and systemic symptoms [Recovered/Resolved]

NARRATIVE: CASE EVENT DATE: 20141127
